FAERS Safety Report 24647263 (Version 1)
Quarter: 2024Q4

REPORT INFORMATION
  Report Type: Spontaneous
  Country: US (occurrence: US)
  Receive Date: 20241121
  Receipt Date: 20241121
  Transmission Date: 20250114
  Serious: Yes (Death)
  Sender: MYLAN
  Company Number: US-MYLANLABS-2024M1104464

PATIENT
  Age: 65 Year
  Sex: Male

DRUGS (12)
  1. GEMCITABINE [Suspect]
     Active Substance: GEMCITABINE
     Indication: Acinar cell carcinoma of pancreas
     Dosage: ADJUVANT TREATMENT
     Route: 065
  2. GEMCITABINE [Suspect]
     Active Substance: GEMCITABINE
     Dosage: UNK
     Route: 065
  3. LEUCOVORIN [Suspect]
     Active Substance: LEUCOVORIN\LEUCOVORIN CALCIUM
     Indication: Acinar cell carcinoma of pancreas
     Dosage: FOLFIRINOX REGIMEN
     Route: 065
  4. OXALIPLATIN [Suspect]
     Active Substance: OXALIPLATIN
     Indication: Acinar cell carcinoma of pancreas
     Dosage: FOLFIRINOX REGIMEN
     Route: 065
  5. CAPECITABINE [Suspect]
     Active Substance: CAPECITABINE
     Indication: Acinar cell carcinoma of pancreas
     Dosage: ADJUVANT TREATMENT
     Route: 065
  6. CAPECITABINE [Suspect]
     Active Substance: CAPECITABINE
     Dosage: ALONG WITH RADIATION
     Route: 065
  7. FLUOROURACIL [Suspect]
     Active Substance: FLUOROURACIL
     Indication: Acinar cell carcinoma of pancreas
     Dosage: FOLFIRINOX REGIMEN
     Route: 065
  8. IRINOTECAN [Suspect]
     Active Substance: IRINOTECAN
     Indication: Acinar cell carcinoma of pancreas
     Dosage: FOLFIRINOX REGIMEN
     Route: 065
  9. LAROTRECTINIB [Suspect]
     Active Substance: LAROTRECTINIB
     Indication: Acinar cell carcinoma of pancreas
     Dosage: UNK
     Route: 065
  10. CAMONSERTIB [Suspect]
     Active Substance: CAMONSERTIB
     Indication: Acinar cell carcinoma of pancreas
     Dosage: UNK
     Route: 065
  11. PACLITAXEL [Suspect]
     Active Substance: PACLITAXEL
     Indication: Acinar cell carcinoma of pancreas
     Dosage: UNK
     Route: 065
  12. OSEMITAMAB [Suspect]
     Active Substance: OSEMITAMAB
     Indication: Acinar cell carcinoma of pancreas
     Dosage: UNK
     Route: 065

REACTIONS (2)
  - Drug ineffective [Fatal]
  - Off label use [Unknown]
